FAERS Safety Report 20006019 (Version 1)
Quarter: 2021Q4

REPORT INFORMATION
  Report Type: Spontaneous
  Country: US (occurrence: US)
  Receive Date: 20211028
  Receipt Date: 20211028
  Transmission Date: 20220304
  Serious: Yes (Hospitalization)
  Sender: FDA-Public Use
  Company Number: None

PATIENT
  Age: 4 Year
  Sex: Female

DRUGS (1)
  1. SILDENAFIL [Suspect]
     Active Substance: SILDENAFIL
     Indication: Ventricular septal defect
     Dosage: GIVE 2 ML VIA G TUBE EVERY 8 HOURS
     Route: 048
     Dates: start: 20190716

REACTIONS (2)
  - Staphylococcal infection [None]
  - Therapy interrupted [None]

NARRATIVE: CASE EVENT DATE: 20210927
